FAERS Safety Report 15680077 (Version 1)
Quarter: 2018Q4

REPORT INFORMATION
  Report Type: Spontaneous
  Country: US (occurrence: US)
  Receive Date: 20181203
  Receipt Date: 20181203
  Transmission Date: 20190205
  Serious: Yes (Disabling, Other)
  Sender: FDA-Public Use
  Company Number: US-ASTRAZENECA-2018SF56681

PATIENT

DRUGS (1)
  1. PRILOSEC [Suspect]
     Active Substance: OMEPRAZOLE MAGNESIUM
     Route: 048

REACTIONS (8)
  - Arthritis [Unknown]
  - Renal failure [Unknown]
  - Cardiac failure [Unknown]
  - Diabetes mellitus [Unknown]
  - Hypertension [Unknown]
  - Paralysis [Unknown]
  - Swelling [Unknown]
  - Weight increased [Unknown]
